FAERS Safety Report 7241118-8 (Version None)
Quarter: 2011Q1

REPORT INFORMATION
  Report Type: 
  Country: None (occurrence: None)
  Receive Date: 20110113
  Receipt Date: 20110106
  Transmission Date: 20110831
  Serious: Yes (Disabling)
  Sender: FDA-Public Use
  Company Number: 2011SP000791

PATIENT
  Age: 43 Year
  Sex: Female
  Weight: 81.6475 kg

DRUGS (2)
  1. PRIMROSE [Concomitant]
  2. IMPLANON [Suspect]
     Indication: ABDOMINAL PAIN
     Dates: start: 20080226

REACTIONS (4)
  - DYSMENORRHOEA [None]
  - METRORRHAGIA [None]
  - DYSSTASIA [None]
  - AMENORRHOEA [None]
